FAERS Safety Report 9169044 (Version 2)
Quarter: 2013Q1

REPORT INFORMATION
  Report Type: Spontaneous
  Country: JP (occurrence: JP)
  Receive Date: 20130318
  Receipt Date: 20130321
  Transmission Date: 20140127
  Serious: Yes (Hospitalization)
  Sender: FDA-Public Use
  Company Number: JP-PFIZER INC-2013086192

PATIENT
  Age: 78 Year
  Sex: Male
  Weight: 51 kg

DRUGS (1)
  1. ZOSYN [Suspect]
     Indication: CELLULITIS
     Dosage: 2.25 G, 4X/DAY
     Route: 041
     Dates: start: 20130128, end: 20130211

REACTIONS (1)
  - Platelet count decreased [Recovered/Resolved]
